FAERS Safety Report 16334047 (Version 1)
Quarter: 2019Q2

REPORT INFORMATION
  Report Type: Spontaneous
  Country: US (occurrence: US)
  Receive Date: 20190520
  Receipt Date: 20190520
  Transmission Date: 20190711
  Serious: Yes (Other)
  Sender: FDA-Public Use
  Company Number: US-EDGEWELL PERSONAL CARE, LLC-2067219

PATIENT
  Age: 52 Year
  Sex: Male

DRUGS (1)
  1. BANANA BOAT (TITANIUM DIOXIDE\ZINC OXIDE) [Suspect]
     Active Substance: TITANIUM DIOXIDE\ZINC OXIDE
     Indication: PROPHYLAXIS AGAINST SOLAR RADIATION
     Route: 061
     Dates: start: 20190505, end: 20190505

REACTIONS (1)
  - Heat stroke [Not Recovered/Not Resolved]

NARRATIVE: CASE EVENT DATE: 20190505
